FAERS Safety Report 9048465 (Version 1)
Quarter: 2013Q1

REPORT INFORMATION
  Report Type: Spontaneous
  Country: US (occurrence: None)
  Receive Date: 20130130
  Receipt Date: 20130130
  Transmission Date: 20140127
  Serious: Yes (Hospitalization)
  Sender: FDA-Public Use
  Company Number: None

PATIENT
  Age: 69 Year
  Sex: Female
  Weight: 43.2 kg

DRUGS (9)
  1. INSULIN NPH [Suspect]
     Indication: DIABETES MELLITUS
  2. HUMALOG [Suspect]
     Indication: DIABETES MELLITUS
     Dosage: TID, AC
  3. NORVASC [Concomitant]
  4. ASPIRIN [Concomitant]
  5. NECLIZINE [Concomitant]
  6. PROTONIX [Concomitant]
  7. EFFIENT [Concomitant]
  8. PRAVACHOL [Concomitant]
  9. SYNTHROID [Concomitant]

REACTIONS (5)
  - Hypoglycaemic seizure [None]
  - Decreased appetite [None]
  - Weight decreased [None]
  - Haemodialysis [None]
  - Refusal of treatment by patient [None]
